FAERS Safety Report 19765566 (Version 3)
Quarter: 2021Q4

REPORT INFORMATION
  Report Type: Spontaneous
  Country: FR (occurrence: FR)
  Receive Date: 20210830
  Receipt Date: 20211129
  Transmission Date: 20220303
  Serious: Yes (Hospitalization, Other)
  Sender: FDA-Public Use
  Company Number: NVSC2021FR194391

PATIENT
  Age: 4 Year
  Sex: Male
  Weight: 17.6 kg

DRUGS (3)
  1. ARTEMETHER\LUMEFANTRINE [Suspect]
     Active Substance: ARTEMETHER\LUMEFANTRINE
     Indication: Malaria
     Dosage: 40 MG ST H0, H8, H12, H48 AND H60
     Route: 048
     Dates: start: 20210813, end: 20210815
  2. DOLIPRANE [Concomitant]
     Active Substance: ACETAMINOPHEN
     Indication: Product used for unknown indication
     Dosage: 1 DF, (SYRUP)
     Route: 048
     Dates: start: 20210813, end: 20210814
  3. SODIUM FEREDETATE [Concomitant]
     Active Substance: SODIUM FEREDETATE
     Indication: Product used for unknown indication
     Dosage: 10 ML, QD
     Route: 048
     Dates: start: 20210815

REACTIONS (3)
  - Haemolytic anaemia [Recovering/Resolving]
  - Pyrexia [Recovered/Resolved]
  - Off label use [Unknown]

NARRATIVE: CASE EVENT DATE: 20210813
